FAERS Safety Report 16138112 (Version 5)
Quarter: 2023Q4

REPORT INFORMATION
  Report Type: Spontaneous
  Country: DE (occurrence: DE)
  Receive Date: 20190330
  Receipt Date: 20231123
  Transmission Date: 20240109
  Serious: Yes (Other)
  Sender: FDA-Public Use
  Company Number: DE-SA-2018SA300255

PATIENT
  Age: 68 Year
  Sex: Male

DRUGS (12)
  1. AMITRIPTYLINE [Suspect]
     Active Substance: AMITRIPTYLINE
     Indication: Trigeminal neuralgia
     Dosage: ALSO RECEIVED 20 MG AND AMITRIPTYLINE 10 DROPS (WEEK 8)
  2. PREGABALIN [Suspect]
     Active Substance: PREGABALIN
     Indication: Post herpetic neuralgia
  3. GABAPENTIN [Suspect]
     Active Substance: GABAPENTIN
     Indication: Trigeminal neuralgia
     Dosage: GABAPENTIN 300-300-300,600-300-300 MG,300 MG
  4. ACYCLOVIR [Suspect]
     Active Substance: ACYCLOVIR
     Indication: Post herpetic neuralgia
  5. CAPSAICIN [Suspect]
     Active Substance: CAPSAICIN
     Indication: Product used for unknown indication
     Dosage: 8%?TOPICAL
  6. AMBROXOL [Suspect]
     Active Substance: AMBROXOL
     Indication: Pain
     Dosage: 20 % OINTMENT?TOPICAL
  7. TAPENTADOL [Suspect]
     Active Substance: TAPENTADOL
     Indication: Trigeminal neuralgia
     Dosage: 100-100-200 MG (AFTER 8 MONTHS)500 MG, 1X/DAY (150-150-200 MG),100-100-200 MG
  8. OXCARBAZEPINE [Suspect]
     Active Substance: OXCARBAZEPINE
     Indication: Trigeminal neuralgia
     Dosage: 150 MG, 2X/DAY, 600 MG,
  9. LIDOCAINE [Suspect]
     Active Substance: LIDOCAINE
     Indication: Trigeminal neuralgia
     Dosage: AT NIGHT
     Route: 061
  10. HYDROMORPHONE HCL [Suspect]
     Active Substance: HYDROMORPHONE HYDROCHLORIDE
     Indication: Trigeminal neuralgia
     Dosage: 4 MG, 2X/DAY (4 - 0 - 4 MG)
  11. DEXAMETHASONE [Suspect]
     Active Substance: DEXAMETHASONE
     Indication: Pain
     Route: 065
  12. DEXKETOPROFEN TROMETAMOL [Concomitant]
     Active Substance: DEXKETOPROFEN TROMETAMOL
     Indication: Post herpetic neuralgia
     Dosage: FOR 60 MINUTES

REACTIONS (23)
  - Glaucoma [Unknown]
  - Sleep apnoea syndrome [Recovered/Resolved]
  - Atrial fibrillation [Unknown]
  - Constipation [Unknown]
  - Sleep deficit [Recovered/Resolved]
  - Drug eruption [Unknown]
  - Drug ineffective [Unknown]
  - Erythema [Unknown]
  - Burning sensation [Unknown]
  - Osteoarthritis [Unknown]
  - Intentional product use issue [Unknown]
  - Benign prostatic hyperplasia [Unknown]
  - Fall [Unknown]
  - Depression [Unknown]
  - Liver function test increased [Unknown]
  - Fatigue [Unknown]
  - Insomnia [Unknown]
  - Hypoaesthesia [Unknown]
  - Hyperaesthesia [Unknown]
  - Nasopharyngitis [Unknown]
  - Blood creatinine increased [Unknown]
  - Quality of life decreased [Unknown]
  - Confusional state [Unknown]
